FAERS Safety Report 5737961-4 (Version None)
Quarter: 2008Q2

REPORT INFORMATION
  Report Type: 
  Country: None (occurrence: None)
  Receive Date: 20080514
  Receipt Date: 20080506
  Transmission Date: 20081010
  Serious: Yes (Life-Threatening, Hospitalization)
  Sender: FDA-Public Use
  Company Number: HQWYE661408DEC06

PATIENT
  Sex: Female

DRUGS (1)
  1. EFFEXOR XR [Suspect]
     Indication: DEPRESSION
     Dates: start: 19960901

REACTIONS (7)
  - CONGENITAL NEUROLOGICAL DISORDER [None]
  - CONVULSION NEONATAL [None]
  - DYSPHAGIA [None]
  - FEEDING DISORDER NEONATAL [None]
  - FOETAL HEART RATE INCREASED [None]
  - HYPERTONIA NEONATAL [None]
  - RESPIRATORY DISORDER NEONATAL [None]
